FAERS Safety Report 24537143 (Version 4)
Quarter: 2025Q3

REPORT INFORMATION
  Report Type: Spontaneous
  Country: US (occurrence: US)
  Receive Date: 20241022
  Receipt Date: 20250709
  Transmission Date: 20251021
  Serious: No
  Sender: SANOFI AVENTIS
  Company Number: US-SA-2024SA299777

PATIENT
  Age: 68 Year
  Sex: Male

DRUGS (2)
  1. DUPIXENT [Suspect]
     Active Substance: DUPILUMAB
     Indication: Eosinophilic oesophagitis
     Dosage: 300 MG, QW
     Route: 058
     Dates: start: 202310, end: 202409
  2. DUPIXENT [Suspect]
     Active Substance: DUPILUMAB
     Dosage: 300 MG, QW
     Route: 058
     Dates: start: 202503

REACTIONS (13)
  - Dyspnoea [Recovering/Resolving]
  - Cough [Unknown]
  - Secretion discharge [Unknown]
  - Pain [Unknown]
  - Condition aggravated [Unknown]
  - Headache [Unknown]
  - Eosinophilic oesophagitis [Recovering/Resolving]
  - Hypopnoea [Recovered/Resolved]
  - Dysphagia [Recovering/Resolving]
  - Retching [Recovering/Resolving]
  - Oesophageal discomfort [Recovering/Resolving]
  - Injection site pain [Recovered/Resolved]
  - Product preparation error [Unknown]

NARRATIVE: CASE EVENT DATE: 20250301
